FAERS Safety Report 21614845 (Version 4)
Quarter: 2022Q4

REPORT INFORMATION
  Report Type: Spontaneous
  Country: US (occurrence: US)
  Receive Date: 20221118
  Receipt Date: 20221216
  Transmission Date: 20230113
  Serious: Yes (Other)
  Sender: FDA-Public Use
  Company Number: US-PFIZER INC-202201304408

PATIENT

DRUGS (5)
  1. MIDAZOLAM [Suspect]
     Active Substance: MIDAZOLAM
     Indication: Dysphonia
     Dosage: SMALL DOSES; DOSES UP TO 4 MG TO 6 MG
     Route: 042
     Dates: start: 20220927, end: 20220929
  2. MIDAZOLAM [Suspect]
     Active Substance: MIDAZOLAM
     Indication: Hallucination
  3. KETAMINE [Concomitant]
     Active Substance: KETAMINE
     Indication: Complex regional pain syndrome
     Dosage: 300 MG
     Route: 042
  4. KETAMINE [Concomitant]
     Active Substance: KETAMINE
     Dosage: 300 MG
     Route: 042
  5. KETAMINE [Concomitant]
     Active Substance: KETAMINE
     Dosage: 300 MG
     Route: 042

REACTIONS (5)
  - Drug ineffective for unapproved indication [Recovered/Resolved]
  - Off label use [Recovered/Resolved]
  - Pain [Unknown]
  - Psychiatric symptom [Unknown]
  - Suspected counterfeit product [Recovered/Resolved]

NARRATIVE: CASE EVENT DATE: 20220901
